FAERS Safety Report 21495580 (Version 1)
Quarter: 2022Q4

REPORT INFORMATION
  Report Type: Spontaneous
  Country: ES (occurrence: ES)
  Receive Date: 20221022
  Receipt Date: 20221022
  Transmission Date: 20230113
  Serious: Yes (Other)
  Sender: FDA-Public Use
  Company Number: ES-CELLTRION INC.-2022ES016983

PATIENT

DRUGS (4)
  1. INFLIXIMAB [Suspect]
     Active Substance: INFLIXIMAB
     Indication: Behcet^s syndrome
     Dosage: 3 MG/KG, 8 WEEKS
     Route: 065
  2. INFLIXIMAB [Suspect]
     Active Substance: INFLIXIMAB
     Dosage: 7 MG/KG, 8 WEEK
     Route: 065
  3. INFLIXIMAB [Suspect]
     Active Substance: INFLIXIMAB
     Dosage: 5 MG/KG, 8 WEEK
     Route: 065
  4. AZATHIOPRINE [Concomitant]
     Active Substance: AZATHIOPRINE
     Indication: Behcet^s syndrome
     Dosage: 50 MG, 12 HOURS
     Route: 065

REACTIONS (6)
  - Behcet^s syndrome [Unknown]
  - Iritis [Recovered/Resolved]
  - Pulmonary tuberculosis [Recovering/Resolving]
  - Tuberculosis of eye [Recovering/Resolving]
  - Off label use [Unknown]
  - Drug ineffective for unapproved indication [Unknown]
